FAERS Safety Report 8349536-1 (Version None)
Quarter: 2012Q2

REPORT INFORMATION
  Report Type: 
  Country: None (occurrence: None)
  Receive Date: 20120510
  Receipt Date: 20120503
  Transmission Date: 20120825
  Serious: Yes (Hospitalization)
  Sender: FDA-Public Use
  Company Number: US-BAYER-2012-042954

PATIENT
  Age: 79 Year
  Sex: Male
  Weight: 86.168 kg

DRUGS (12)
  1. FISH OIL [Concomitant]
  2. VITAMIN A [Concomitant]
  3. MULTIVITAMINS AND IRON [Concomitant]
  4. XARELTO [Suspect]
     Indication: ATRIAL FIBRILLATION
     Dosage: 20 MG, QD
     Route: 048
     Dates: start: 20120101, end: 20120419
  5. VITAMIN D [Concomitant]
  6. ASCORBIC ACID [Concomitant]
  7. ASPIRIN [Suspect]
     Dosage: 81 MG, UNK
     Route: 048
     Dates: start: 20120501
  8. ASPIRIN [Suspect]
     Indication: ILL-DEFINED DISORDER
     Dosage: 81 MG, UNK
     Route: 048
  9. METOPROLOL TARTRATE [Concomitant]
     Indication: CARDIAC DISORDER
     Route: 048
  10. OMEPRAZOLE [Concomitant]
  11. OMEPRAZOLE [Concomitant]
  12. SIMVASTATIN [Concomitant]
     Indication: BLOOD CHOLESTEROL ABNORMAL

REACTIONS (3)
  - ATRIAL FIBRILLATION [None]
  - SPLENIC RUPTURE [None]
  - CATARACT OPERATION [None]
